FAERS Safety Report 6999513-8 (Version None)
Quarter: 2010Q3

REPORT INFORMATION
  Report Type: 
  Country: None (occurrence: None)
  Receive Date: 20100920
  Receipt Date: 20070912
  Transmission Date: 20110219
  Serious: Yes (Hospitalization, Other)
  Sender: FDA-Public Use
  Company Number: US-ASTRAZENECA-2006UW27545

PATIENT
  Age: 38 Year
  Sex: Female
  Weight: 88 kg

DRUGS (13)
  1. SEROQUEL [Suspect]
     Indication: DEPRESSION
     Route: 048
     Dates: start: 20001101
  2. SEROQUEL [Suspect]
     Indication: BIPOLAR DISORDER
     Route: 048
     Dates: start: 20001101
  3. SEROQUEL [Suspect]
     Dosage: DOSE- 25 MG - 350 MG
     Route: 048
     Dates: start: 20010129
  4. SEROQUEL [Suspect]
     Dosage: DOSE- 25 MG - 350 MG
     Route: 048
     Dates: start: 20010129
  5. RISPERDAL [Concomitant]
  6. SUSTIVA [Concomitant]
  7. VIREAD [Concomitant]
  8. REMERON [Concomitant]
     Indication: SLEEP DISORDER
     Dosage: STRENGTH- 15 MG, 45 MG, 60 MG.  DOSE- 15 - 60 MG DAILY
  9. EPIVIR [Concomitant]
  10. ULTRAM [Concomitant]
  11. ZANTAC [Concomitant]
  12. DEMEROL [Concomitant]
  13. VERSED [Concomitant]

REACTIONS (11)
  - ABDOMINAL PAIN [None]
  - ARTHRALGIA [None]
  - ASYMPTOMATIC HIV INFECTION [None]
  - BACK DISORDER [None]
  - HEPATITIS B [None]
  - HEPATITIS C [None]
  - HIV INFECTION [None]
  - HIV TEST POSITIVE [None]
  - JOINT INJURY [None]
  - PANCREATITIS [None]
  - PANCREATITIS ACUTE [None]
